FAERS Safety Report 6862406-0 (Version None)
Quarter: 2010Q2

REPORT INFORMATION
  Report Type: 
  Country: None (occurrence: None)
  Receive Date: 20100528
  Receipt Date: 20100107
  Transmission Date: 20101027
  Serious: Yes (Hospitalization)
  Sender: FDA-Public Use
  Company Number: CIP10000042

PATIENT
  Age: 76 Year
  Sex: Female

DRUGS (9)
  1. ACTONEL [Suspect]
     Dosage: 150 MG ONCE MONTHLY, ORAL ; 150 MG ONE MONTHLY, ORAL
     Route: 050
     Dates: start: 20090305, end: 20090305
  2. ACTONEL [Suspect]
     Dosage: 150 MG ONCE MONTHLY, ORAL ; 150 MG ONE MONTHLY, ORAL
     Route: 050
     Dates: start: 20090601, end: 20090701
  3. LIPITOR [Concomitant]
  4. EFFEXOR /01233601/ (VENLAFAXINE) [Concomitant]
  5. OMEPRAZOLE [Concomitant]
  6. CITRACAL (CALCIUM CITRATE) [Concomitant]
  7. MULTIVITAMIN /00097801/ (ASCORBIC ACID, CALCIUM PANTOTHENATE, ERGOCALC [Concomitant]
  8. VITAMIN D [Concomitant]
  9. ASPIRIN [Concomitant]

REACTIONS (1)
  - CHEST PAIN [None]
